FAERS Safety Report 14688699 (Version 1)
Quarter: 2018Q1

REPORT INFORMATION
  Report Type: Spontaneous
  Country: US (occurrence: US)
  Receive Date: 20180328
  Receipt Date: 20180328
  Transmission Date: 20180509
  Serious: No
  Sender: FDA-Public Use
  Company Number: US-BRECKENRIDGE PHARMACEUTICAL, INC.-2044676

PATIENT
  Sex: Female

DRUGS (1)
  1. TERBINAFINE HYDROCHLORIDE TABLET [Suspect]
     Active Substance: TERBINAFINE HYDROCHLORIDE
     Route: 048

REACTIONS (4)
  - Tremor [None]
  - Dry mouth [None]
  - Dry skin [None]
  - Ageusia [None]
